FAERS Safety Report 10165149 (Version 2)
Quarter: 2014Q2

REPORT INFORMATION
  Report Type: Spontaneous
  Country: US (occurrence: US)
  Receive Date: 20140510
  Receipt Date: 20140510
  Transmission Date: 20141212
  Serious: No
  Sender: FDA-Public Use
  Company Number: US-BRISTOL-MYERS SQUIBB COMPANY-20318374

PATIENT
  Age: 50 Year
  Sex: Female
  Weight: 93.42 kg

DRUGS (4)
  1. BYDUREON [Suspect]
     Indication: TYPE 2 DIABETES MELLITUS
     Route: 058
  2. JENTADUETO [Concomitant]
  3. PRAVASTATIN SODIUM [Concomitant]
  4. VITAMIN D [Concomitant]

REACTIONS (6)
  - Nasopharyngitis [Unknown]
  - Nausea [Unknown]
  - Decreased appetite [Unknown]
  - Vomiting [Unknown]
  - Weight decreased [Unknown]
  - Drug dose omission [Unknown]
